FAERS Safety Report 16008843 (Version 3)
Quarter: 2019Q1

REPORT INFORMATION
  Report Type: Spontaneous
  Country: US (occurrence: US)
  Receive Date: 20190225
  Receipt Date: 20190320
  Transmission Date: 20190418
  Serious: No
  Sender: FDA-Public Use
  Company Number: US-TEVA-2019-US-1013466

PATIENT
  Age: 67 Year
  Sex: Female

DRUGS (4)
  1. CLONAZEPAM ACTAVIS [Suspect]
     Active Substance: CLONAZEPAM
     Indication: ANXIETY
     Dates: start: 201809
  2. CLONAZEPAM ACTAVIS [Suspect]
     Active Substance: CLONAZEPAM
     Indication: SLEEP DISORDER
  3. CLONAZEPAM ACCORD [Suspect]
     Active Substance: CLONAZEPAM
     Route: 065
  4. MIRTAZAPINE TEVA [Concomitant]
     Active Substance: MIRTAZAPINE
     Indication: SLEEP DISORDER

REACTIONS (13)
  - Restlessness [Unknown]
  - Decreased interest [Unknown]
  - Drug ineffective [Unknown]
  - Fatigue [Unknown]
  - Product use in unapproved indication [Unknown]
  - Dizziness [Not Recovered/Not Resolved]
  - Depression [Unknown]
  - Somnolence [Unknown]
  - Product substitution issue [Unknown]
  - Asthenia [Unknown]
  - Vision blurred [Unknown]
  - Tremor [Unknown]
  - Product prescribing error [Unknown]

NARRATIVE: CASE EVENT DATE: 201810
